FAERS Safety Report 24244828 (Version 2)
Quarter: 2024Q3

REPORT INFORMATION
  Report Type: Spontaneous
  Country: IT (occurrence: IT)
  Receive Date: 20240823
  Receipt Date: 20240827
  Transmission Date: 20241017
  Serious: Yes (Life-Threatening, Hospitalization, Other)
  Sender: PFIZER
  Company Number: IT-PFIZER INC-202400240155

PATIENT
  Age: 6 Year
  Sex: Male

DRUGS (21)
  1. VINCRISTINE SULFATE [Suspect]
     Active Substance: VINCRISTINE SULFATE
     Indication: Acute lymphocytic leukaemia
     Dosage: 1.5 MG/MQ DAYS 8-15-22-29
     Dates: start: 202210
  2. DEXAMETHASONE SODIUM PHOSPHATE [Suspect]
     Active Substance: DEXAMETHASONE PHOSPHATE\DEXAMETHASONE SODIUM PHOSPHATE
     Indication: Acute lymphocytic leukaemia
     Dosage: 20 MG/MQ, FROM DAY 1 TO DAY 21
     Dates: start: 202210
  3. DEXAMETHASONE SODIUM PHOSPHATE [Suspect]
     Active Substance: DEXAMETHASONE PHOSPHATE\DEXAMETHASONE SODIUM PHOSPHATE
     Dosage: TAPERING STARTED ON DAY 22
  4. DOXORUBICIN HYDROCHLORIDE [Suspect]
     Active Substance: DOXORUBICIN HYDROCHLORIDE
     Indication: Acute lymphocytic leukaemia
     Dosage: 30 MG/MQ, ON DAYS 8-15-22-29
  5. METHYLPREDNISOLONE [Suspect]
     Active Substance: METHYLPREDNISOLONE
     Indication: Status epilepticus
     Dosage: 20 MG, 2X/DAY
     Dates: start: 20221005, end: 20221023
  6. PEG/L-ASPARAGINASE [Suspect]
     Active Substance: PEGASPARGASE
     Indication: Acute lymphocytic leukaemia
     Dosage: 2500 UI/MQ, DAY 8
     Dates: start: 202210
  7. HUMAN IMMUNOGLOBULIN G [Suspect]
     Active Substance: HUMAN IMMUNOGLOBULIN G
     Indication: Status epilepticus
     Dosage: 1 G/KG/DAY
     Dates: start: 20221006, end: 20221010
  8. LEVETIRACETAM [Concomitant]
     Active Substance: LEVETIRACETAM
     Indication: Epileptic encephalopathy
     Dosage: 20 MG/KG, 2X/DAY
     Dates: start: 20221005
  9. LEVETIRACETAM [Concomitant]
     Active Substance: LEVETIRACETAM
     Dosage: 40 MG, 2X/DAY
     Dates: end: 20221013
  10. VALPROIC ACID [Concomitant]
     Active Substance: VALPROIC ACID
     Indication: Epileptic encephalopathy
     Dosage: 30 MG/KG, 2X/DAY, BOLUS
     Dates: start: 20221009, end: 20221023
  11. ACYCLOVIR [Concomitant]
     Active Substance: ACYCLOVIR
     Indication: Epileptic encephalopathy
     Dosage: 10 MG/KG, 3X/DAY
     Dates: start: 20221005
  12. ACYCLOVIR [Concomitant]
     Active Substance: ACYCLOVIR
     Dosage: UNK, ACYCLOVIR DOSAGE WAS DOUBLED
  13. ACYCLOVIR [Concomitant]
     Active Substance: ACYCLOVIR
     Dosage: 20 MG/KG, 3X/DAY
  14. PROPOFOL [Concomitant]
     Active Substance: PROPOFOL
     Indication: Sedation
     Dosage: 20 UG/KG/MIN, TITRATED BY 5-10 MCG/KG/MIN
     Dates: start: 20231006, end: 20231010
  15. PROPOFOL [Concomitant]
     Active Substance: PROPOFOL
     Indication: Seizure
  16. REMIFENTANIL [Concomitant]
     Active Substance: REMIFENTANIL
     Indication: Sedation
     Dosage: UNK
  17. MIDAZOLAM [Concomitant]
     Active Substance: MIDAZOLAM
     Indication: Seizure
     Dosage: 0.2 MG/KG/H
     Dates: start: 20221005, end: 20221011
  18. FENTANYL [Concomitant]
     Active Substance: FENTANYL\FENTANYL CITRATE
     Indication: Sedation
  19. KETAMINE [Concomitant]
     Active Substance: KETAMINE
     Indication: Sedation
     Dosage: 10-40 UG/KG/MIN
     Dates: start: 20221006, end: 20221016
  20. PHENOBARBITAL [Concomitant]
     Active Substance: PHENOBARBITAL
     Indication: Epilepsy
     Dosage: 150 MG, 1X/DAY
     Dates: start: 20221007, end: 20221023
  21. PHENYTOIN [Concomitant]
     Active Substance: PHENYTOIN
     Indication: Epilepsy
     Dosage: 500 MG, 1X/DAY
     Dates: start: 20221007, end: 20221022

REACTIONS (1)
  - Varicella zoster virus infection [Recovered/Resolved]
